FAERS Safety Report 4741454-0 (Version None)
Quarter: 2005Q3

REPORT INFORMATION
  Report Type: 
  Country: None (occurrence: None)
  Receive Date: 20050808
  Receipt Date: 20050728
  Transmission Date: 20060218
  Serious: Yes (Other)
  Sender: FDA-Public Use
  Company Number: 2005049680

PATIENT
  Age: 93 Year
  Sex: Male
  Weight: 77.1115 kg

DRUGS (5)
  1. TIKOSYN [Suspect]
     Indication: TACHYCARDIA
     Dosage: 1 MG (0.5 MG, BID), ORAL
     Route: 048
     Dates: start: 20020105, end: 20050301
  2. WARFARIN SODIUM [Concomitant]
  3. ANTITHYROID PREPARATIONS (ANTITHYROID PREPARATIONS) [Concomitant]
  4. LORAZEPAM [Concomitant]
  5. ANTIDEPRESSANTS (ANTIDEPRESSANTS) [Concomitant]

REACTIONS (6)
  - ABASIA [None]
  - FALL [None]
  - HAEMATOMA [None]
  - PNEUMONIA [None]
  - RIB FRACTURE [None]
  - VENTRICULAR TACHYCARDIA [None]
